FAERS Safety Report 8379482-9 (Version None)
Quarter: 2012Q1

REPORT INFORMATION
  Report Type: 
  Country: None (occurrence: None)
  Receive Date: 20120323
  Receipt Date: 20110329
  Transmission Date: 20120608
  Serious: Yes (Other)
  Sender: FDA-Public Use
  Company Number: 163-21880-11030991

PATIENT
  Age: 66 Year
  Sex: Male
  Weight: 65.7716 kg

DRUGS (5)
  1. ENALAPRIL MALEATE [Concomitant]
  2. OMEPRAZOLE [Concomitant]
  3. REVLIMID [Suspect]
     Indication: MULTIPLE MYELOMA
     Dosage: 25 MG, 1 IN 1 D, PO
     Route: 048
     Dates: start: 20110201
  4. LORTAB (VICODIN) (UNKNOWN) [Concomitant]
  5. BIAXIN [Suspect]
     Indication: DRUG THERAPY
     Dosage: 250 MG, QD, PO
     Route: 048
     Dates: start: 20110223, end: 20110310

REACTIONS (2)
  - HAEMOGLOBIN DECREASED [None]
  - RECTAL HAEMORRHAGE [None]
